FAERS Safety Report 8584449-1 (Version None)
Quarter: 2012Q3

REPORT INFORMATION
  Report Type: 
  Country: None (occurrence: None)
  Receive Date: 20120730
  Receipt Date: 20120718
  Transmission Date: 20120928
  Serious: Yes (Other)
  Sender: FDA-Public Use
  Company Number: 2012SA051082

PATIENT
  Age: 47 Year
  Sex: Female

DRUGS (1)
  1. MENTHOL [Suspect]
     Indication: BACK PAIN
     Dates: start: 20120619

REACTIONS (3)
  - ALLODYNIA [None]
  - CHEMICAL INJURY [None]
  - IMPAIRED HEALING [None]
